FAERS Safety Report 6274210-5 (Version None)
Quarter: 2009Q3

REPORT INFORMATION
  Report Type: 
  Country: None (occurrence: None)
  Receive Date: 20090720
  Receipt Date: 20090714
  Transmission Date: 20100115
  Serious: Yes (Life-Threatening, Hospitalization)
  Sender: FDA-Public Use
  Company Number: US-ROXANE LABORATORIES, INC.-2009-RO-00692RO

PATIENT
  Age: 66 Year
  Sex: Female
  Weight: 117 kg

DRUGS (3)
  1. DIGOXIN [Suspect]
     Indication: PULMONARY HYPERTENSION
  2. SILDENAFIL CITRATE [Suspect]
     Indication: PULMONARY HYPERTENSION
  3. DIGIBIND [Concomitant]
     Indication: THERAPEUTIC AGENT TOXICITY
     Route: 042

REACTIONS (5)
  - ATRIOVENTRICULAR BLOCK [None]
  - CARDIAC ARREST [None]
  - EXTRASYSTOLES [None]
  - THERAPEUTIC AGENT TOXICITY [None]
  - VENTRICULAR EXTRASYSTOLES [None]
